FAERS Safety Report 14509948 (Version 2)
Quarter: 2019Q3

REPORT INFORMATION
  Report Type: Spontaneous
  Country: GB (occurrence: GB)
  Receive Date: 20180209
  Receipt Date: 20190801
  Transmission Date: 20191004
  Serious: Yes (Life-Threatening, Other)
  Sender: FDA-Public Use
  Company Number: GB-BEH-2018087568

PATIENT
  Age: 84 Year
  Sex: Male

DRUGS (9)
  1. PRIVIGEN [Suspect]
     Active Substance: HUMAN IMMUNOGLOBULIN G
     Indication: PRODUCT USED FOR UNKNOWN INDICATION
     Dosage: 10 GRAM
     Route: 041
     Dates: end: 20170918
  2. OMEPRAZOLE. [Concomitant]
     Active Substance: OMEPRAZOLE
     Dosage: EACH MORNING.
     Route: 048
  3. ADCAL D3 [Concomitant]
     Active Substance: CALCIUM CARBONATE\CHOLECALCIFEROL
     Dosage: IN THE MORNING AND AT TEATIME.
     Route: 048
  4. ADCAL D3 [Concomitant]
     Active Substance: CALCIUM CARBONATE\CHOLECALCIFEROL
     Dosage: DOSE REDUCED DUE TO INTERACTION WITH ELTROMBOPAG.
     Route: 048
  5. OMEPRAZOLE. [Concomitant]
     Active Substance: OMEPRAZOLE
     Dosage: EACH MORNING.
     Route: 048
  6. PIROXICAM. [Concomitant]
     Active Substance: PIROXICAM
     Dosage: THREE OR FOUR TIMES A DAY.
     Route: 065
  7. VITAMIN B COMPOUND                 /00171501/ [Concomitant]
     Dosage: IN THE MORNING
     Route: 048
  8. PHENOXYMETHYLPENICILLIN [Concomitant]
     Active Substance: PENICILLIN V
     Indication: SPLENECTOMY
     Dosage: IN THE MORNING AND AT TEATIME.
     Route: 048
  9. ALENDRONIC ACID [Concomitant]
     Active Substance: ALENDRONIC ACID
     Dosage: ON THE SAME DAY EACH WEEK AT 6 AM- SUNDAY.
     Route: 048

REACTIONS (2)
  - Respiratory rate increased [Recovered/Resolved]
  - Anaphylactic reaction [Recovered/Resolved]

NARRATIVE: CASE EVENT DATE: 20170909
